FAERS Safety Report 10746817 (Version 1)
Quarter: 2015Q1

REPORT INFORMATION
  Report Type: Report from Study
  Country: AR (occurrence: AR)
  Receive Date: 20150129
  Receipt Date: 20150129
  Transmission Date: 20150721
  Serious: Yes (Other)
  Sender: FDA-Public Use
  Company Number: PHHY2015AR008268

PATIENT
  Age: 22 Year
  Sex: Female

DRUGS (1)
  1. TOBI PODHALER [Suspect]
     Active Substance: TOBRAMYCIN
     Indication: CYSTIC FIBROSIS
     Dosage: 4 IN MORNING AND 4 IN NIGHT
     Route: 055

REACTIONS (5)
  - Staphylococcal infection [Recovering/Resolving]
  - Lung infection [Recovering/Resolving]
  - Pseudomonas infection [Recovering/Resolving]
  - Decreased bronchial secretion [Unknown]
  - Burkholderia infection [Recovering/Resolving]

NARRATIVE: CASE EVENT DATE: 20150108
